FAERS Safety Report 21714932 (Version 1)
Quarter: 2022Q4

REPORT INFORMATION
  Report Type: Spontaneous
  Country: US (occurrence: US)
  Receive Date: 20221212
  Receipt Date: 20221212
  Transmission Date: 20230112
  Serious: No
  Sender: FDA-Public Use
  Company Number: US-TEVA-2022-US-2062369

PATIENT
  Sex: Female

DRUGS (1)
  1. AJOVY [Suspect]
     Active Substance: FREMANEZUMAB-VFRM
     Indication: Product used for unknown indication
     Dosage: STRENGTH: 225 MG/1.5 ML
     Route: 058

REACTIONS (6)
  - Injection site haemorrhage [Unknown]
  - Drug delivery system issue [Unknown]
  - Accidental exposure to product [Unknown]
  - Device defective [Unknown]
  - Device issue [Unknown]
  - Device malfunction [Unknown]
